FAERS Safety Report 8757909 (Version 1)
Quarter: 2012Q4

REPORT INFORMATION
  Report Type: 
  Country: JP (occurrence: JP)
  Receive Date: 20120828
  Receipt Date: 20120828
  Transmission Date: 20130627
  Serious: Yes (Hospitalization)
  Sender: FDA-Public Use
  Company Number: JP-ASTELLAS-2012JP007866

PATIENT
  Age: 76 Year
  Sex: Male

DRUGS (1)
  1. MIRABEGRON [Suspect]
     Route: 048

REACTIONS (1)
  - Blood glucose decreased [Unknown]
